APPROVED DRUG PRODUCT: PROMETHAZINE HYDROCHLORIDE
Active Ingredient: PROMETHAZINE HYDROCHLORIDE
Strength: 50MG
Dosage Form/Route: TABLET;ORAL
Application: A040791 | Product #001
Applicant: IMPAX LABORATORIES INC
Approved: May 20, 2008 | RLD: No | RS: No | Type: DISCN